FAERS Safety Report 18427520 (Version 1)
Quarter: 2020Q4

REPORT INFORMATION
  Report Type: Spontaneous
  Country: PT (occurrence: PT)
  Receive Date: 20201026
  Receipt Date: 20201026
  Transmission Date: 20210114
  Serious: Yes (Other)
  Sender: FDA-Public Use
  Company Number: PT-PFIZER INC-2020350897

PATIENT
  Sex: Female

DRUGS (1)
  1. CRIZOTINIB [Suspect]
     Active Substance: CRIZOTINIB
     Dosage: 250 MG, TWICE A DAY
     Route: 048
     Dates: start: 2018

REACTIONS (4)
  - Sinus node dysfunction [Unknown]
  - Oedema [Unknown]
  - Fatigue [Unknown]
  - Bradycardia [Unknown]

NARRATIVE: CASE EVENT DATE: 202010
